FAERS Safety Report 24151246 (Version 1)
Quarter: 2024Q3

REPORT INFORMATION
  Report Type: Spontaneous
  Country: US (occurrence: US)
  Receive Date: 20240730
  Receipt Date: 20240730
  Transmission Date: 20241016
  Serious: No
  Sender: GLENMARK
  Company Number: US-GLENMARK PHARMACEUTICALS-2023GMK084494

PATIENT

DRUGS (3)
  1. MUPIROCIN [Suspect]
     Active Substance: MUPIROCIN
     Indication: Basal cell carcinoma
     Dosage: UNK, HS (ONCE BEFORE GOING TO BED)
     Route: 061
  2. VITAMINS NOS [Concomitant]
     Active Substance: VITAMINS
     Indication: Product used for unknown indication
     Dosage: UNK
     Route: 065
  3. CALCIUM [Concomitant]
     Active Substance: CALCIUM
     Indication: Product used for unknown indication
     Dosage: UNK, PILL
     Route: 065

REACTIONS (8)
  - Rhinalgia [Not Recovered/Not Resolved]
  - Discomfort [Unknown]
  - Fatigue [Unknown]
  - Product use in unapproved indication [Unknown]
  - Nasal oedema [Not Recovered/Not Resolved]
  - Drug hypersensitivity [Unknown]
  - Erythema [Not Recovered/Not Resolved]
  - Nasal pruritus [Not Recovered/Not Resolved]
